FAERS Safety Report 9831556 (Version 2)
Quarter: 2014Q1

REPORT INFORMATION
  Report Type: Spontaneous
  Country: HU (occurrence: HU)
  Receive Date: 20140121
  Receipt Date: 20140121
  Transmission Date: 20141002
  Serious: Yes (Hospitalization)
  Sender: FDA-Public Use
  Company Number: HU-ROCHE-1336125

PATIENT
  Age: 56 Year
  Sex: Male

DRUGS (3)
  1. ALTEPLASE [Suspect]
     Indication: VASCULAR GRAFT OCCLUSION
     Route: 040
  2. ALTEPLASE [Suspect]
     Dosage: MAINTENANCE DOSE
     Route: 042
  3. HEPARIN [Suspect]
     Indication: VASCULAR GRAFT OCCLUSION
     Dosage: ADJUSTED ACCORDING TO ACTIVATED CLOTTING TIME
     Route: 042

REACTIONS (1)
  - Vascular graft complication [Recovered/Resolved]
